FAERS Safety Report 14637694 (Version 3)
Quarter: 2018Q2

REPORT INFORMATION
  Report Type: Spontaneous
  Country: US (occurrence: US)
  Receive Date: 20180314
  Receipt Date: 20180405
  Transmission Date: 20180711
  Serious: Yes (Disabling)
  Sender: FDA-Public Use
  Company Number: US-PFIZER INC-2016356802

PATIENT
  Age: 49 Year
  Sex: Male

DRUGS (22)
  1. PROPRANOLOL HCL [Concomitant]
     Active Substance: PROPRANOLOL HYDROCHLORIDE
     Dosage: 80 MG, 2X/DAY (1 (ORAL) EVERY 12 HOURS FOR 30 DAYS)
     Route: 048
     Dates: start: 20160429
  2. CELEBREX [Concomitant]
     Active Substance: CELECOXIB
     Indication: OSTEOARTHRITIS
     Dosage: 200 MG, DAILY
     Route: 048
     Dates: start: 2006
  3. BRINTELLIX [Concomitant]
     Active Substance: VORTIOXETINE HYDROBROMIDE
     Dosage: 20 MG, 1X/DAY
     Route: 048
     Dates: start: 20160708
  4. CLONIDINE HCL [Concomitant]
     Active Substance: CLONIDINE HYDROCHLORIDE
     Dosage: UNK, 3X/DAY (0.1)
  5. LYRICA [Suspect]
     Active Substance: PREGABALIN
     Indication: NEUROPATHY PERIPHERAL
     Dosage: 200 MG, 2X/DAY
     Route: 048
     Dates: start: 2006, end: 201710
  6. LYRICA [Suspect]
     Active Substance: PREGABALIN
     Indication: SEIZURE
  7. VIBERZI [Concomitant]
     Active Substance: ELUXADOLINE
     Dosage: 100 MG, 2X/DAY (1(ONE) TABLET (ORAL) BID W/ FOOD)
     Route: 048
     Dates: start: 20160708
  8. ZOLPIDEM TARTRATE. [Concomitant]
     Active Substance: ZOLPIDEM TARTRATE
     Dosage: 10 MG, AS NEEDED (1 (ONE) TABLET (ORAL) QHS/ PRN)
     Route: 048
     Dates: start: 20160708
  9. PROMETHAZINE HCL [Concomitant]
     Active Substance: PROMETHAZINE HYDROCHLORIDE
     Dosage: 25 MG, AS NEEDED (1 (ORAL) EVERY 6 HOURS AS NEEDED)
     Route: 048
  10. LYRICA [Suspect]
     Active Substance: PREGABALIN
     Indication: PAIN
  11. BREO ELLIPTA [Concomitant]
     Active Substance: FLUTICASONE FUROATE\VILANTEROL TRIFENATATE
     Dosage: UNK, DAILY (FLUTICASONE FUROATE 100 UG AND VILANTEROL 25 UG INHALATION POWDER, 1 PUFF DAILY)
     Dates: start: 20160708
  12. CLONIDINE HCL [Concomitant]
     Active Substance: CLONIDINE HYDROCHLORIDE
     Dosage: 0.3 MG, DAILY (0.1 MG, 1 (ONE) TABLET (ORAL) EVERY EIGHT 8 HOURS)
     Route: 048
     Dates: start: 20160708
  13. OMEPRAZOLE. [Concomitant]
     Active Substance: OMEPRAZOLE
     Dosage: 40 MG, DAILY
     Route: 048
     Dates: start: 20160708
  14. LORAZEPAM. [Concomitant]
     Active Substance: LORAZEPAM
     Dosage: 2 MG, 2X/DAY
     Route: 048
     Dates: start: 20160429
  15. LIBRAX [Concomitant]
     Active Substance: CHLORDIAZEPOXIDE HYDROCHLORIDE\CLIDINIUM BROMIDE
     Dosage: UNK, 3X/DAY (5)
  16. PROVENTIL HFA [Concomitant]
     Active Substance: ALBUTEROL SULFATE
     Dosage: UNK, AS NEEDED (2 (TWO) PUFF (INHALATION) EVERY FOUR HOURS AS NEEDED)
     Dates: start: 20151021
  17. LOMOTIL [Concomitant]
     Active Substance: ATROPINE SULFATE\DIPHENOXYLATE HYDROCHLORIDE
     Dosage: 2 DF, 4X/DAY (DIPHENOXYLATE HYDROCHLORIDE 2.5 MG, ATROPINE SULFATE 0.25 MG)
     Route: 048
     Dates: start: 20160708
  18. CELEBREX [Concomitant]
     Active Substance: CELECOXIB
     Dosage: 200 MG, DAILY
     Route: 048
     Dates: start: 20160712
  19. LIBRAX [Concomitant]
     Active Substance: CHLORDIAZEPOXIDE HYDROCHLORIDE\CLIDINIUM BROMIDE
     Dosage: UNK, AS NEEDED (CHLORDIAZEPOXIDE HYDROCHLORIDE 5 MG, CLIDINIUM BROMIDE 2.5 MG, 1 3 TIMES DAILY,PRN)
     Route: 048
     Dates: start: 20160429
  20. LYRICA [Suspect]
     Active Substance: PREGABALIN
     Indication: CERVICAL SPINAL STENOSIS
     Dosage: 150 MG, 2X/DAY
     Route: 048
     Dates: start: 20160712
  21. LYRICA [Suspect]
     Active Substance: PREGABALIN
     Indication: NEUROPATHY PERIPHERAL
     Dosage: 200 MG, 2X/DAY
     Route: 048
  22. PERCOCET [Concomitant]
     Active Substance: ACETAMINOPHEN\OXYCODONE HYDROCHLORIDE
     Dosage: UNK, AS NEEDED (OXYCODONE 10 MG, ACETAMINOPHEN 325MG, 1 THREE TIMES DAILY, AS NEEDED)
     Route: 048
     Dates: start: 20160524

REACTIONS (5)
  - Pain [Not Recovered/Not Resolved]
  - Condition aggravated [Not Recovered/Not Resolved]
  - Feeling jittery [Not Recovered/Not Resolved]
  - Weight increased [Unknown]
  - Body height decreased [Unknown]

NARRATIVE: CASE EVENT DATE: 201710
